FAERS Safety Report 5317540-3 (Version None)
Quarter: 2007Q2

REPORT INFORMATION
  Report Type: 
  Country: None (occurrence: None)
  Receive Date: 20070507
  Receipt Date: 20070426
  Transmission Date: 20071010
  Serious: Yes (Other)
  Sender: FDA-Public Use
  Company Number: PHEH2007US06470

PATIENT
  Sex: Male

DRUGS (2)
  1. FENTANYL [Suspect]
     Indication: PAIN
     Dates: start: 20030101, end: 20030101
  2. NEORAL [Suspect]
     Indication: LIVER TRANSPLANT
     Dosage: 25 MG, BID
     Route: 048
     Dates: start: 19990101

REACTIONS (4)
  - CHEST PAIN [None]
  - DYSPNOEA [None]
  - RASH [None]
  - SPINAL OSTEOARTHRITIS [None]
